FAERS Safety Report 13194660 (Version 1)
Quarter: 2017Q1

REPORT INFORMATION
  Report Type: Spontaneous
  Country: BR (occurrence: BR)
  Receive Date: 20170207
  Receipt Date: 20170207
  Transmission Date: 20170428
  Serious: Yes (Other)
  Sender: FDA-Public Use
  Company Number: BR-ELI_LILLY_AND_COMPANY-BR201608001962

PATIENT
  Age: 70 Year
  Sex: Female
  Weight: 80 kg

DRUGS (18)
  1. LAMITOR [Concomitant]
     Active Substance: LAMOTRIGINE
     Dosage: UNK, UNKNOWN
     Route: 065
  2. HUMULIN R [Suspect]
     Active Substance: INSULIN HUMAN
     Dosage: 6 IU, QD
     Route: 058
  3. LANTUS [Concomitant]
     Active Substance: INSULIN GLARGINE
     Dosage: 30 IU, UNKNOWN
     Route: 065
  4. HUMULIN R [Suspect]
     Active Substance: INSULIN HUMAN
     Dosage: 6 IU, QD
     Route: 058
     Dates: start: 20160723
  5. CYMBALTA [Suspect]
     Active Substance: DULOXETINE HYDROCHLORIDE
     Indication: DIABETES MELLITUS
     Dosage: UNK, UNKNOWN
     Route: 065
  6. BRASART [Concomitant]
     Active Substance: VALSARTAN
     Dosage: UNK, UNKNOWN
     Route: 065
  7. HUMULIN R [Suspect]
     Active Substance: INSULIN HUMAN
     Dosage: 4 IU, EACH MORNING
     Route: 058
  8. LOSARTANA POTASSICA [Concomitant]
     Active Substance: LOSARTAN
     Dosage: UNK, UNKNOWN
     Route: 065
  9. METFORMINA                         /00082702/ [Concomitant]
     Dosage: UNK, UNKNOWN
     Route: 065
  10. PROPANOLOL                         /00030002/ [Concomitant]
     Active Substance: PROPRANOLOL HYDROCHLORIDE
     Dosage: UNK, UNKNOWN
     Route: 065
  11. CLOZAPINA [Concomitant]
     Active Substance: CLOZAPINE
     Dosage: 25 MG, UNKNOWN
     Route: 065
  12. HUMULIN R [Suspect]
     Active Substance: INSULIN HUMAN
     Indication: DIABETES MELLITUS
     Dosage: 4 IU, EACH MORNING
     Route: 058
     Dates: start: 20160723
  13. BROMAZEPAN [Concomitant]
     Active Substance: BROMAZEPAM
     Dosage: UNK, UNKNOWN
     Route: 065
  14. HUMULIN R [Suspect]
     Active Substance: INSULIN HUMAN
     Dosage: 4 IU, EACH EVENING
     Route: 058
     Dates: start: 20160723
  15. HUMULIN N [Suspect]
     Active Substance: INSULIN HUMAN
     Indication: PRODUCT USED FOR UNKNOWN INDICATION
     Dosage: 32 IU, EACH MORNING
     Route: 065
     Dates: start: 201601
  16. HUMULIN R [Suspect]
     Active Substance: INSULIN HUMAN
     Dosage: 4 IU, EACH EVENING
     Route: 058
  17. HUMULIN N [Suspect]
     Active Substance: INSULIN HUMAN
     Dosage: 16 IU, EACH EVENING
     Route: 065
     Dates: start: 201601
  18. AMATO [Concomitant]
     Active Substance: TOPIRAMATE
     Dosage: 25 MG, UNKNOWN
     Route: 065

REACTIONS (30)
  - Pollakiuria [Unknown]
  - Impaired insulin secretion [Unknown]
  - Visual impairment [Unknown]
  - Pain [Unknown]
  - Peripheral swelling [Not Recovered/Not Resolved]
  - Spinal deformity [Not Recovered/Not Resolved]
  - Spinal disorder [Not Recovered/Not Resolved]
  - Weight decreased [Unknown]
  - Hunger [Unknown]
  - Insomnia [Unknown]
  - Wrong drug administered [Unknown]
  - Back pain [Unknown]
  - Blood glucose fluctuation [Not Recovered/Not Resolved]
  - Peripheral swelling [Not Recovered/Not Resolved]
  - Arthralgia [Unknown]
  - Hypertension [Not Recovered/Not Resolved]
  - Skin disorder [Unknown]
  - Renal pain [Unknown]
  - Gait disturbance [Not Recovered/Not Resolved]
  - Peripheral swelling [Unknown]
  - Abdominal pain [Unknown]
  - Fall [Unknown]
  - Constipation [Unknown]
  - Tachycardia [Not Recovered/Not Resolved]
  - Blood glucose increased [Unknown]
  - Off label use [Unknown]
  - Fibromyalgia [Not Recovered/Not Resolved]
  - Abdominal distension [Not Recovered/Not Resolved]
  - Cardiac disorder [Not Recovered/Not Resolved]
  - Hypersensitivity [Not Recovered/Not Resolved]

NARRATIVE: CASE EVENT DATE: 20160723
